FAERS Safety Report 4295683-3 (Version None)
Quarter: 2004Q1

REPORT INFORMATION
  Report Type: 
  Country: None (occurrence: None)
  Receive Date: 20040216
  Receipt Date: 20030812
  Transmission Date: 20041129
  Serious: No
  Sender: FDA-Public Use
  Company Number: US-GLAXOSMITHKLINE-A0420842A

PATIENT
  Age: 27 Year
  Sex: Female

DRUGS (2)
  1. PAXIL [Suspect]
     Dosage: 10 PER DAY
     Route: 048
     Dates: start: 20030807, end: 20030809
  2. NO CONCURRENT MEDICATION [Concomitant]

REACTIONS (5)
  - BURNING SENSATION [None]
  - DIARRHOEA [None]
  - NAUSEA [None]
  - PALPITATIONS [None]
  - VOMITING [None]
